FAERS Safety Report 8474853-4 (Version None)
Quarter: 2012Q2

REPORT INFORMATION
  Report Type: 
  Country: None (occurrence: None)
  Receive Date: 20120628
  Receipt Date: 20120620
  Transmission Date: 20120825
  Serious: Yes (Other)
  Sender: FDA-Public Use
  Company Number: GB-BRISTOL-MYERS SQUIBB COMPANY-16702193

PATIENT

DRUGS (1)
  1. YERVOY [Suspect]

REACTIONS (2)
  - UVEITIS [None]
  - THROMBOCYTOPENIA [None]
